FAERS Safety Report 11951835 (Version 1)
Quarter: 2016Q1

REPORT INFORMATION
  Report Type: Spontaneous
  Country: JP (occurrence: JP)
  Receive Date: 20160126
  Receipt Date: 20160126
  Transmission Date: 20160526
  Serious: Yes (Life-Threatening, Other)
  Sender: FDA-Public Use
  Company Number: JP-009507513-1512JPN010558

PATIENT
  Age: 70 Year
  Sex: Male
  Weight: 74 kg

DRUGS (7)
  1. ROPION [Suspect]
     Active Substance: FLURBIPROFEN AXETIL
     Dosage: DAILY DOSAGE UNKNOWN
     Route: 051
  2. CEFAMEZIN [Suspect]
     Active Substance: CEFAZOLIN
     Dosage: DAILY DOSAGE UNKNOWN
     Route: 051
  3. RAVONAL [Concomitant]
     Active Substance: THIOPENTAL
     Dosage: DAILY DOSAGE UNKNOWN
     Route: 051
  4. ESLAX [Suspect]
     Active Substance: ROCURONIUM BROMIDE
     Dosage: 50 MG BEFORE OPERATION AND ADDITIONAL 10 MG 30 MINUTES AFTER OPERATION START
     Route: 042
     Dates: start: 20151214, end: 20151214
  5. ULTIVA [Concomitant]
     Active Substance: REMIFENTANIL HYDROCHLORIDE
     Dosage: DAILY DOSAGE UNKNOWN
     Route: 051
  6. FENTANYL. [Suspect]
     Active Substance: FENTANYL
     Dosage: DAILY DOSAGE UNKNOWN
     Route: 065
  7. BRIDION [Suspect]
     Active Substance: SUGAMMADEX
     Dosage: DIVIDED DOSE FREQUENCY UNKNOWN. BRIDION LEAKED FROM THE NEEDLE AND RE-ADMINISTERED ON RIGHT HAND
     Route: 042
     Dates: start: 20151214, end: 20151214

REACTIONS (3)
  - Musculoskeletal stiffness [Unknown]
  - Anaphylactic shock [Recovered/Resolved]
  - Respiratory failure [Recovered/Resolved]

NARRATIVE: CASE EVENT DATE: 20151214
